FAERS Safety Report 7471574-1 (Version None)
Quarter: 2011Q2

REPORT INFORMATION
  Report Type: 
  Country: None (occurrence: None)
  Receive Date: 20110511
  Receipt Date: 20110426
  Transmission Date: 20111010
  Serious: Yes (Other)
  Sender: FDA-Public Use
  Company Number: US-BAYER-201013588NA

PATIENT
  Sex: Female
  Weight: 77.098 kg

DRUGS (5)
  1. ADVIL LIQUI-GELS [Concomitant]
  2. APRI [Concomitant]
     Indication: CONTRACEPTION
     Dosage: UNK
  3. FEMCON CHEWABLE [Concomitant]
  4. YAZ [Suspect]
     Indication: CONTRACEPTION
     Dosage: UNK UNK, QD
     Route: 048
     Dates: start: 20070801, end: 20080601
  5. YAZ [Suspect]
     Dosage: UNK
     Dates: start: 20081001, end: 20090501

REACTIONS (3)
  - CHOLECYSTITIS [None]
  - UNEVALUABLE EVENT [None]
  - GALLBLADDER DISORDER [None]
